FAERS Safety Report 4684446-2 (Version None)
Quarter: 2005Q2

REPORT INFORMATION
  Report Type: 
  Country: None (occurrence: None)
  Receive Date: 20050531
  Receipt Date: 20050311
  Transmission Date: 20051028
  Serious: Yes (Hospitalization)
  Sender: FDA-Public Use
  Company Number: US_0503113811

PATIENT
  Age: 59 Year
  Sex: Male
  Weight: 89 kg

DRUGS (6)
  1. ZYPREXA [Suspect]
     Dosage: 2.5 MG
     Route: 048
     Dates: start: 20021123, end: 20040630
  2. SYMBYAX [Suspect]
     Dates: start: 20021123, end: 20040630
  3. SEROQUEL [Concomitant]
  4. WELLBUTRIN (IBUPROPION HYDROCHLORIDE) [Concomitant]
  5. PAXIL [Concomitant]
  6. LOPRESSOR [Concomitant]

REACTIONS (4)
  - BLOOD CHOLESTEROL ABNORMAL [None]
  - BLOOD TRIGLYCERIDES INCREASED [None]
  - CARDIOMEGALY [None]
  - PANCREATITIS [None]
